FAERS Safety Report 9519178 (Version 1)
Quarter: 2013Q1

REPORT INFORMATION
  Report Type: Spontaneous
  Country: US (occurrence: None)
  Receive Date: 20130305
  Receipt Date: 20130305
  Transmission Date: 20140127
  Serious: Yes (Other)
  Sender: FDA-Public Use
  Company Number: 163-21880-12101805

PATIENT
  Age: 61 Year
  Sex: Male
  Weight: 63.5 kg

DRUGS (6)
  1. REVLIMID [Suspect]
     Indication: PLASMA CELL MYELOMA
     Dosage: 10 MG, 1 IN 1 D, PO
     Route: 048
     Dates: start: 20100901
  2. ZOLOFT [Suspect]
     Indication: ANHEDONIA
     Dates: start: 201210, end: 201210
  3. ADVIL ( IBUPROFEN) (UNKNOWN) [Concomitant]
  4. AREDIA ( PAMIDORONATE DISODIUM) (UNKNOWN) [Concomitant]
  5. ASPIRIN (ACETYLSALICYLIC ACID) ( UNKNOWN) [Concomitant]
  6. MULTIVIAMINS ( MULTIVITAMINS) ( UNKNOWN) [Concomitant]

REACTIONS (2)
  - Hangover [None]
  - Anhedonia [None]
